FAERS Safety Report 8333646-9 (Version None)
Quarter: 2012Q2

REPORT INFORMATION
  Report Type: 
  Country: None (occurrence: None)
  Receive Date: 20120503
  Receipt Date: 20120419
  Transmission Date: 20120825
  Serious: No
  Sender: FDA-Public Use
  Company Number: US-BAYER-2012-039470

PATIENT
  Age: 63 Year
  Sex: Female

DRUGS (10)
  1. TRAMADOL HCL [Concomitant]
  2. NAPROXEN (ALEVE) [Suspect]
     Indication: PAIN
     Dosage: 2 DF, BID
  3. B VITAMIN COMP [B5,B3,B6,B2,B1 HCL] [Concomitant]
  4. FISH OIL [Concomitant]
  5. TYLENOL ARTHRITIS [Concomitant]
  6. CALCIUM [Concomitant]
  7. NAPROXEN SODIUM [Suspect]
     Indication: PAIN
     Dosage: 2 DF, BID
     Route: 048
     Dates: start: 20120101
  8. VITAMIN D [Concomitant]
  9. LIPITOR [Concomitant]
  10. PROTON PUMP INHIBITORS [Concomitant]

REACTIONS (1)
  - NO ADVERSE EVENT [None]
